FAERS Safety Report 5012557-0 (Version None)
Quarter: 2006Q2

REPORT INFORMATION
  Report Type: 
  Country: None (occurrence: None)
  Receive Date: 20060414
  Receipt Date: 20060114
  Transmission Date: 20061013
  Serious: No
  Sender: FDA-Public Use
  Company Number: 2006SP000263

PATIENT
  Age: 44 Year
  Sex: Female
  Weight: 81.6475 kg

DRUGS (3)
  1. LUNESTA [Suspect]
     Indication: SLEEP DISORDER
     Dosage: 3 MG;HS
     Dates: start: 20060104, end: 20060113
  2. ULTRAM [Concomitant]
  3. METHERGINE [Concomitant]

REACTIONS (1)
  - PARADOXICAL DRUG REACTION [None]
